FAERS Safety Report 9786440 (Version 1)
Quarter: 2013Q4

REPORT INFORMATION
  Report Type: Spontaneous
  Country: TR (occurrence: None)
  Receive Date: 20131226
  Receipt Date: 20131226
  Transmission Date: 20140711
  Serious: Yes (Death, Hospitalization)
  Sender: FDA-Public Use
  Company Number: SYM-2013-14259

PATIENT
  Age: 39 Year
  Sex: Female

DRUGS (4)
  1. METRONIDAZOLE (METRONIDAZOLE) [Suspect]
     Indication: INFECTION
  2. LITHIUM (LITHIUM) [Suspect]
     Indication: BIPOLAR DISORDER
  3. OLANZAPINE (OLANZAPINE) [Suspect]
     Indication: BIPOLAR DISORDER
  4. VORICONAZOLE [Suspect]
     Indication: INFECTION

REACTIONS (12)
  - Neurotoxicity [None]
  - Grand mal convulsion [None]
  - Myoclonic epilepsy [None]
  - Toxicity to various agents [None]
  - Anaemia [None]
  - Leukocytosis [None]
  - Hepatic enzyme increased [None]
  - Atrioventricular block [None]
  - Hypotension [None]
  - Bradycardia [None]
  - Cardiac arrest [None]
  - Depressed level of consciousness [None]
